FAERS Safety Report 7634895-5 (Version None)
Quarter: 2011Q3

REPORT INFORMATION
  Report Type: 
  Country: None (occurrence: None)
  Receive Date: 20110726
  Receipt Date: 20090727
  Transmission Date: 20111222
  Serious: No
  Sender: FDA-Public Use
  Company Number: 2009BI023615

PATIENT
  Age: 56 Year
  Sex: Male

DRUGS (2)
  1. TYSABRI [Suspect]
     Indication: MULTIPLE SCLEROSIS
     Route: 042
     Dates: start: 20061012, end: 20100317
  2. AVONEX [Concomitant]
     Indication: MULTIPLE SCLEROSIS
     Route: 030
     Dates: start: 20000301

REACTIONS (7)
  - NAUSEA [None]
  - MOBILITY DECREASED [None]
  - BACK INJURY [None]
  - FALL [None]
  - DRUG HYPERSENSITIVITY [None]
  - POOR VENOUS ACCESS [None]
  - SOFT TISSUE INJURY [None]
